FAERS Safety Report 15373404 (Version 2)
Quarter: 2018Q4

REPORT INFORMATION
  Report Type: Spontaneous
  Country: FR (occurrence: FR)
  Receive Date: 20180912
  Receipt Date: 20181005
  Transmission Date: 20190204
  Serious: Yes (Hospitalization, Other)
  Sender: FDA-Public Use
  Company Number: FR-AUROBINDO-AUR-APL-2018-045506

PATIENT
  Age: 67 Year
  Sex: Male
  Weight: 86 kg

DRUGS (8)
  1. PARACETAMOL [Suspect]
     Active Substance: ACETAMINOPHEN
     Indication: PRODUCT USED FOR UNKNOWN INDICATION
     Dosage: 1000 MG, 3X/DAY, DAYS 1-4-7 ; CYCLICAL
     Route: 048
     Dates: start: 20141107, end: 20141113
  2. MITOXANTRONE TEVA [Suspect]
     Active Substance: MITOXANTRONE HYDROCHLORIDE
     Indication: ACUTE MYELOID LEUKAEMIA
     Dosage: 12 MG/M2, 1X/DAY, D1 AND D2 ; CYCLICAL
     Route: 065
     Dates: start: 20141107, end: 20141108
  3. POLARAMINE EXPECT [Suspect]
     Active Substance: DEXCHLORPHENIRAMINE MALEATE\GUAIFENESIN\PSEUDOEPHEDRINE SULFATE
     Indication: PRODUCT USED FOR UNKNOWN INDICATION
     Dosage: 5 MILLIGRAM, DAILY
     Route: 048
     Dates: start: 20141107
  4. POLARAMINE EXPECT [Suspect]
     Active Substance: DEXCHLORPHENIRAMINE MALEATE\GUAIFENESIN\PSEUDOEPHEDRINE SULFATE
     Dosage: 5 MG, 1X/DAY, DAYS 1-4-7
     Route: 048
     Dates: start: 20141107, end: 20141113
  5. ZOPHREN                            /00955301/ [Suspect]
     Active Substance: ONDANSETRON
     Indication: PRODUCT USED FOR UNKNOWN INDICATION
     Dosage: 1 DOSAGE FORM, DAILY
     Route: 042
     Dates: start: 20141107
  6. ZOPHREN                            /00955301/ [Suspect]
     Active Substance: ONDANSETRON
     Dosage: 8 MG, 2X/DAY, FROM D1 TO D6
     Route: 042
     Dates: start: 20141107, end: 20141112
  7. MYLOTARG                           /01278901/ [Suspect]
     Active Substance: LEVOFLOXACIN
     Indication: ACUTE LEUKAEMIA
     Dosage: 3 MG/M2, 1X/DAY, DAYS 1-4-7
     Route: 065
     Dates: start: 20141107, end: 20141113
  8. CYTARABINE SANDOZ [Suspect]
     Active Substance: CYTARABINE
     Indication: ACUTE MYELOID LEUKAEMIA
     Dosage: 2200 MG, 2X/DAY, FROM D1 TO D6 ; CYCLICAL
     Route: 065
     Dates: start: 20141107, end: 20141112

REACTIONS (5)
  - Vomiting [Recovered/Resolved]
  - Diarrhoea [Recovered/Resolved]
  - Nausea [Recovered/Resolved]
  - Staphylococcus test positive [Recovered/Resolved]
  - Febrile neutropenia [Recovered/Resolved]

NARRATIVE: CASE EVENT DATE: 201411
